FAERS Safety Report 6431182-8 (Version None)
Quarter: 2009Q4

REPORT INFORMATION
  Report Type: 
  Country: None (occurrence: None)
  Receive Date: 20091105
  Receipt Date: 20091105
  Transmission Date: 20100525
  Serious: Yes (Other)
  Sender: FDA-Public Use
  Company Number: None

PATIENT
  Sex: Male
  Weight: 72 kg

DRUGS (2)
  1. NEUPOGEN [Suspect]
     Indication: HAEMATOPOIETIC STEM CELL MOBILISATION
     Dosage: 300 MCG DAILY SQ
     Route: 058
     Dates: start: 20090924, end: 20090927
  2. NEUPOGEN [Suspect]
     Indication: HAEMATOPOIETIC STEM CELL MOBILISATION
     Dosage: 480 MCG DAILY SQ
     Route: 058
     Dates: start: 20090924, end: 20090927

REACTIONS (1)
  - AUTOIMMUNE THROMBOCYTOPENIA [None]
